FAERS Safety Report 4335114-8 (Version None)
Quarter: 2004Q2

REPORT INFORMATION
  Report Type: 
  Country: None (occurrence: None)
  Receive Date: 20040408
  Receipt Date: 20040331
  Transmission Date: 20050107
  Serious: Yes (Other)
  Sender: FDA-Public Use
  Company Number: PHBS2004GB04398

PATIENT
  Age: 20 Year
  Sex: Female

DRUGS (3)
  1. SYNTOCINON [Suspect]
     Dosage: 4 IU, ONCE/SINGLE
     Route: 042
  2. SYNTOCINON [Suspect]
     Dosage: REPEAT ADMINISTRATION
  3. PROSTAGLANDIN F2 [Concomitant]

REACTIONS (10)
  - BLOOD PRESSURE DECREASED [None]
  - CIRCULATORY COLLAPSE [None]
  - HAEMOGLOBIN DECREASED [None]
  - HAEMORRHAGE [None]
  - OEDEMA [None]
  - PULSE ABSENT [None]
  - RESUSCITATION [None]
  - UTERINE ATONY [None]
  - UTERINE INVERSION [None]
  - WHOLE BLOOD TRANSFUSION [None]
